FAERS Safety Report 9591263 (Version 1)
Quarter: 2013Q4

REPORT INFORMATION
  Report Type: Spontaneous
  Country: US (occurrence: US)
  Receive Date: 20131003
  Receipt Date: 20131003
  Transmission Date: 20140711
  Serious: No
  Sender: FDA-Public Use
  Company Number: US-AMGEN-USASP2012080940

PATIENT
  Sex: Female
  Weight: 61.22 kg

DRUGS (9)
  1. ENBREL [Suspect]
     Indication: PSORIATIC ARTHROPATHY
     Dosage: 50 MG, WEEKLY
     Route: 058
  2. ENBREL [Suspect]
     Indication: LUPUS-LIKE SYNDROME
  3. ENBREL [Suspect]
     Indication: SJOGREN^S SYNDROME
  4. PLAQUENIL                          /00072602/ [Concomitant]
     Dosage: 200 MG, UNK
  5. LOESTRIN [Concomitant]
     Dosage: 1/20-21, UNK
  6. CALCIUM [Concomitant]
     Dosage: 600 UNK, UNK
  7. IBUPROFEN [Concomitant]
     Dosage: 200 MG, UNK
  8. GLUCOSAMINE [Concomitant]
     Dosage: 200-300, UNK
  9. MULTIVITAMINS, PLAIN [Concomitant]
     Dosage: UNK

REACTIONS (2)
  - Injection site pain [Unknown]
  - Injection site bruising [Unknown]
